FAERS Safety Report 18340212 (Version 2)
Quarter: 2020Q4

REPORT INFORMATION
  Report Type: Report from Study
  Country: US (occurrence: US)
  Receive Date: 20201002
  Receipt Date: 20201007
  Transmission Date: 20210113
  Serious: Yes (Other)
  Sender: FDA-Public Use
  Company Number: US-BRISTOL-MYERS SQUIBB COMPANY-BMS-2020-079565

PATIENT
  Sex: Female
  Weight: 80.74 kg

DRUGS (4)
  1. NEURO MAG [Concomitant]
     Indication: PRODUCT USED FOR UNKNOWN INDICATION
     Dosage: UNK
     Route: 065
  2. VITAMINS D3 [Concomitant]
     Indication: PRODUCT USED FOR UNKNOWN INDICATION
     Dosage: UNK
     Route: 065
  3. APIXABAN [Suspect]
     Active Substance: APIXABAN
     Indication: DEEP VEIN THROMBOSIS
     Dosage: 5 MILLIGRAM, BID
     Route: 048
  4. APIXABAN [Suspect]
     Active Substance: APIXABAN
     Dosage: 2.5 MILLIGRAM, BID
     Route: 048
     Dates: start: 2019

REACTIONS (8)
  - Somnolence [Unknown]
  - Weight fluctuation [Unknown]
  - Fatigue [Unknown]
  - Hypotension [Unknown]
  - Visual impairment [Unknown]
  - Cataract [Unknown]
  - Vitreous floaters [Unknown]
  - Back pain [Unknown]
